FAERS Safety Report 15524577 (Version 6)
Quarter: 2019Q4

REPORT INFORMATION
  Report Type: Spontaneous
  Country: US (occurrence: US)
  Receive Date: 20181018
  Receipt Date: 20191226
  Transmission Date: 20200122
  Serious: No
  Sender: FDA-Public Use
  Company Number: US-PFIZER INC-2018423894

PATIENT
  Age: 49 Year
  Sex: Female

DRUGS (3)
  1. LYRICA [Suspect]
     Active Substance: PREGABALIN
     Dosage: 150 MG, 3X/DAY
  2. LYRICA [Suspect]
     Active Substance: PREGABALIN
     Dosage: 300 MG, 3X/DAY
     Route: 048
     Dates: start: 20190625
  3. LYRICA [Suspect]
     Active Substance: PREGABALIN
     Indication: NEOPLASM MALIGNANT
     Dosage: 300 MG, 2X/DAY

REACTIONS (4)
  - Disturbance in attention [Unknown]
  - Product use in unapproved indication [Unknown]
  - Prescribed overdose [Unknown]
  - Off label use [Unknown]
